FAERS Safety Report 7895869-2 (Version None)
Quarter: 2011Q4

REPORT INFORMATION
  Report Type: 
  Country: None (occurrence: None)
  Receive Date: 20111104
  Receipt Date: 20111104
  Transmission Date: 20120403
  Serious: Yes (Hospitalization)
  Sender: FDA-Public Use
  Company Number: None

PATIENT
  Sex: Female
  Weight: 47.2 kg

DRUGS (9)
  1. LIPITOR [Concomitant]
  2. TIVOZINIB [Suspect]
     Indication: COLORECTAL CANCER
     Dosage: 1 MG PO QD
     Route: 048
     Dates: start: 20110323, end: 20110912
  3. EVEROLIMUS [Suspect]
     Indication: COLORECTAL CANCER
     Dosage: 10 MG PO QD
     Route: 048
     Dates: start: 20110323, end: 20110912
  4. VITAMIN B-12 [Concomitant]
  5. COMPAZINE [Concomitant]
  6. MAGNESIUM OXIDE [Concomitant]
  7. SYNTHROID [Concomitant]
  8. POTASSIUM CHLORIDE [Concomitant]
  9. AMLODIPINE [Concomitant]

REACTIONS (13)
  - DEEP VEIN THROMBOSIS [None]
  - ASCITES [None]
  - DIARRHOEA [None]
  - BLOOD ALKALINE PHOSPHATASE INCREASED [None]
  - CHOLELITHIASIS [None]
  - WHITE BLOOD CELL COUNT INCREASED [None]
  - BILE DUCT OBSTRUCTION [None]
  - FATIGUE [None]
  - HYPERBILIRUBINAEMIA [None]
  - ASPARTATE AMINOTRANSFERASE INCREASED [None]
  - SMALL INTESTINAL OBSTRUCTION [None]
  - CHILLS [None]
  - HYDRONEPHROSIS [None]
